FAERS Safety Report 6398518-8 (Version None)
Quarter: 2009Q4

REPORT INFORMATION
  Report Type: 
  Country: None (occurrence: None)
  Receive Date: 20091007
  Receipt Date: 20090928
  Transmission Date: 20100525
  Serious: Yes (Hospitalization)
  Sender: FDA-Public Use
  Company Number: 2009-197121-NL

PATIENT
  Age: 46 Year
  Sex: Female
  Weight: 64 kg

DRUGS (1)
  1. MARVELON 21      (DESOGESTREL/ETHINYLESTRADIOL) [Suspect]
     Indication: DRUG USE FOR UNKNOWN INDICATION
     Dosage: 1 DF;QD; PO
     Route: 048
     Dates: start: 20050618

REACTIONS (1)
  - ENDOMETRIOSIS [None]
